FAERS Safety Report 15703452 (Version 1)
Quarter: 2018Q4

REPORT INFORMATION
  Report Type: Spontaneous
  Country: US (occurrence: US)
  Receive Date: 20181210
  Receipt Date: 20181210
  Transmission Date: 20190205
  Serious: No
  Sender: FDA-Public Use
  Company Number: US-PFIZER INC-2018500115

PATIENT
  Age: 10 Year
  Sex: Male

DRUGS (2)
  1. GENOTROPIN [Suspect]
     Active Substance: SOMATROPIN
     Dosage: 1.7 MG, 5 DAYS A WEEK
     Dates: start: 20130909
  2. GENOTROPIN [Suspect]
     Active Substance: SOMATROPIN
     Dosage: 1.7 MG, 6 DAYS A WEEK
     Dates: start: 20130909

REACTIONS (4)
  - Device issue [Unknown]
  - High density lipoprotein decreased [Unknown]
  - Blood immunoglobulin A increased [Unknown]
  - Product dose omission [Unknown]
